FAERS Safety Report 24699082 (Version 2)
Quarter: 2024Q4

REPORT INFORMATION
  Report Type: Report from Study
  Country: GB (occurrence: GB)
  Receive Date: 20241205
  Receipt Date: 20241218
  Transmission Date: 20250114
  Serious: No
  Sender: ABBVIE
  Company Number: GB-ABBVIE-6029422

PATIENT
  Age: 72 Year
  Sex: Male

DRUGS (1)
  1. FOSCARBIDOPA\FOSLEVODOPA [Suspect]
     Active Substance: FOSCARBIDOPA\FOSLEVODOPA
     Indication: Parkinson^s disease
     Dosage: 240MG/ML + 12MG/ML
     Route: 058

REACTIONS (1)
  - Movement disorder [Unknown]
